FAERS Safety Report 16785982 (Version 1)
Quarter: 2019Q4

REPORT INFORMATION
  Report Type: Spontaneous
  Country: US (occurrence: US)
  Receive Date: 20190908
  Receipt Date: 20190908
  Transmission Date: 20200122
  Serious: No
  Sender: FDA-Public Use
  Company Number: None

PATIENT
  Age: 71 Year
  Sex: Male
  Weight: 67.5 kg

DRUGS (3)
  1. AMOXICILLIN, 500 MG. [Suspect]
     Active Substance: AMOXICILLIN
     Indication: MUSCLE DISORDER
     Dosage: ?          QUANTITY:1 TABLET(S);?
     Route: 048
     Dates: start: 20190827, end: 20190902
  2. FIRMAGON INJECTIONS [Concomitant]
  3. AMOXICILLIN, 500 MG. [Suspect]
     Active Substance: AMOXICILLIN
     Indication: POST PROCEDURAL INFECTION
     Dosage: ?          QUANTITY:1 TABLET(S);?
     Route: 048
     Dates: start: 20190827, end: 20190902

REACTIONS (2)
  - Rash pruritic [None]
  - Rash pustular [None]

NARRATIVE: CASE EVENT DATE: 20190830
